FAERS Safety Report 7638635-5 (Version None)
Quarter: 2011Q3

REPORT INFORMATION
  Report Type: 
  Country: None (occurrence: None)
  Receive Date: 20110727
  Receipt Date: 20110722
  Transmission Date: 20111222
  Serious: Yes (Other)
  Sender: FDA-Public Use
  Company Number: US-PFIZER INC-2011168442

PATIENT
  Sex: Female

DRUGS (3)
  1. NORVASC [Suspect]
     Dosage: 2.5 MG, 1X/DAY
  2. VASOTEC [Suspect]
     Dosage: UNK
  3. TENORMIN [Suspect]
     Dosage: UNK

REACTIONS (2)
  - MEMORY IMPAIRMENT [None]
  - GLUCOSE TOLERANCE IMPAIRED [None]
